FAERS Safety Report 19004387 (Version 2)
Quarter: 2021Q2

REPORT INFORMATION
  Report Type: Report from Study
  Country: None (occurrence: BR)
  Receive Date: 20210313
  Receipt Date: 20210415
  Transmission Date: 20210717
  Serious: Yes (Death)
  Sender: FDA-Public Use
  Company Number: BR-ABBVIE-21K-020-3814649-00

PATIENT
  Age: 44 Year
  Sex: Female

DRUGS (1)
  1. HUMIRA [Suspect]
     Active Substance: ADALIMUMAB
     Indication: CROHN^S DISEASE
     Dosage: UNSPECIFIED DOSE CITRATE FREE
     Route: 058
     Dates: end: 2021

REACTIONS (1)
  - Death [Fatal]

NARRATIVE: CASE EVENT DATE: 20210226
